FAERS Safety Report 20149964 (Version 2)
Quarter: 2022Q1

REPORT INFORMATION
  Report Type: Other
  Country: AR (occurrence: AR)
  Receive Date: 20211206
  Receipt Date: 20220225
  Transmission Date: 20220423
  Serious: Yes (Hospitalization)
  Sender: FDA-Public Use
  Company Number: AR-002147023-NVSC2021AR126126

PATIENT
  Age: 71 Year
  Sex: Male

DRUGS (4)
  1. XOLAIR [Suspect]
     Active Substance: OMALIZUMAB
     Indication: Asthma
     Route: 058
     Dates: start: 20101201
  2. XOLAIR [Suspect]
     Active Substance: OMALIZUMAB
     Route: 058
     Dates: start: 20201201
  3. PREGABALIN [Concomitant]
     Active Substance: PREGABALIN
  4. CARVEDILOL [Concomitant]
     Active Substance: CARVEDILOL

REACTIONS (13)
  - SARS-CoV-2 antibody test positive [Unknown]
  - Pneumonia [Unknown]
  - COVID-19 [Unknown]
  - Fear [Unknown]
  - Sleep terror [Unknown]
  - Enuresis [Unknown]
  - Memory impairment [Unknown]
  - Back pain [Recovering/Resolving]
  - Post-acute COVID-19 syndrome [Unknown]
  - Sciatica [Unknown]
  - Muscle disorder [Unknown]
  - Arthralgia [Unknown]
  - Spinal pain [Unknown]

NARRATIVE: CASE EVENT DATE: 20210501
